FAERS Safety Report 9356291 (Version 1)
Quarter: 2013Q2

REPORT INFORMATION
  Report Type: Spontaneous
  Country: US (occurrence: US)
  Receive Date: 20130619
  Receipt Date: 20130619
  Transmission Date: 20140414
  Serious: Yes (Hospitalization, Other)
  Sender: FDA-Public Use
  Company Number: US-BAYER-2013-075146

PATIENT
  Age: 19 Year
  Sex: Female

DRUGS (6)
  1. YAZ [Suspect]
     Indication: CONTRACEPTION
  2. CIPRO [Concomitant]
     Dosage: UNK
     Route: 048
     Dates: start: 20081002
  3. REMERON [Concomitant]
     Indication: DEPRESSION
     Dosage: 30 MG, DAILY
     Route: 048
     Dates: start: 20081210
  4. KLONOPIN [Concomitant]
     Indication: ANXIETY
     Dosage: 95 MG, BID
     Dates: start: 20081210
  5. BENTYL [Concomitant]
     Indication: IRRITABLE BOWEL SYNDROME
     Dosage: 10 MG, BID
     Route: 048
     Dates: start: 20081210
  6. ZOLOFT [Concomitant]
     Indication: DEPRESSION
     Dosage: 200 MG, DAILY
     Route: 048
     Dates: start: 20081210

REACTIONS (2)
  - Pulmonary embolism [Recovered/Resolved]
  - Cholelithiasis [None]
